FAERS Safety Report 10093854 (Version 1)
Quarter: 2014Q2

REPORT INFORMATION
  Report Type: Spontaneous
  Country: US (occurrence: US)
  Receive Date: 20140421
  Receipt Date: 20140421
  Transmission Date: 20141212
  Serious: No
  Sender: FDA-Public Use
  Company Number: US-SA-2014SA025789

PATIENT
  Age: 79 Year
  Sex: Female

DRUGS (7)
  1. ALLEGRA [Suspect]
     Indication: COUGH
     Route: 048
     Dates: start: 20140225
  2. TARCEVA [Concomitant]
  3. VERAPAMIL [Concomitant]
     Indication: BLOOD PRESSURE
  4. DIOVAN [Concomitant]
     Indication: BLOOD PRESSURE
  5. SIMVASTATIN [Concomitant]
     Indication: BLOOD CHOLESTEROL
  6. LEVOTHYROXINE [Concomitant]
     Indication: THYROID DISORDER
  7. GABAPENTIN [Concomitant]
     Indication: PRURITUS

REACTIONS (2)
  - Fatigue [Not Recovered/Not Resolved]
  - Somnolence [Recovered/Resolved]
